FAERS Safety Report 4656116-8 (Version None)
Quarter: 2005Q2

REPORT INFORMATION
  Report Type: 
  Country: None (occurrence: None)
  Receive Date: 20050502
  Receipt Date: 20050425
  Transmission Date: 20051028
  Serious: No
  Sender: FDA-Public Use
  Company Number: 200510124BBE

PATIENT
  Age: 35 Year
  Sex: Female

DRUGS (1)
  1. GAMUNEX [Suspect]
     Dosage: INTRAVENOUS
     Route: 042

REACTIONS (2)
  - INFUSION RELATED REACTION [None]
  - MENINGITIS ASEPTIC [None]
